FAERS Safety Report 18576453 (Version 2)
Quarter: 2021Q1

REPORT INFORMATION
  Report Type: Spontaneous
  Country: US (occurrence: US)
  Receive Date: 20201203
  Receipt Date: 20210106
  Transmission Date: 20210419
  Serious: Yes (Hospitalization, Disabling, Other)
  Sender: FDA-Public Use
  Company Number: US-PURDUE-USA-2020-0158484

PATIENT
  Sex: Female

DRUGS (2)
  1. OXYCODONE/ ACETAMINOPHEN TABLETS [Suspect]
     Active Substance: ACETAMINOPHEN\OXYCODONE HYDROCHLORIDE
     Indication: PRODUCT USED FOR UNKNOWN INDICATION
     Dosage: UNK
     Route: 048
  2. OXYCONTIN [Suspect]
     Active Substance: OXYCODONE HYDROCHLORIDE
     Indication: PRODUCT USED FOR UNKNOWN INDICATION
     Dosage: UNK
     Route: 048

REACTIONS (17)
  - Constipation [Unknown]
  - Calcium deficiency [Unknown]
  - Amnesia [Unknown]
  - Paraesthesia [Unknown]
  - Tooth loss [Unknown]
  - Movement disorder [Unknown]
  - Pain [Unknown]
  - Overdose [Unknown]
  - Knee operation [Unknown]
  - Hepatic lesion [Unknown]
  - Bone loss [Unknown]
  - Drug dependence [Unknown]
  - Major depression [Unknown]
  - Dyspnoea [Unknown]
  - Tremor [Unknown]
  - Mental status changes [Unknown]
  - Nephropathy [Unknown]
